FAERS Safety Report 13928484 (Version 1)
Quarter: 2017Q3

REPORT INFORMATION
  Report Type: Spontaneous
  Country: US (occurrence: US)
  Receive Date: 20170901
  Receipt Date: 20170901
  Transmission Date: 20171127
  Serious: Yes (Other)
  Sender: FDA-Public Use
  Company Number: US-TEVA-802107USA

PATIENT
  Sex: Female
  Weight: 97.16 kg

DRUGS (13)
  1. SERTRALINE [Concomitant]
     Active Substance: SERTRALINE HYDROCHLORIDE
     Dosage: 1- 11/2 TABLETS DAILY
     Route: 065
  2. RISPERIDAL [Concomitant]
     Active Substance: RISPERIDONE
     Indication: PSYCHOTIC DISORDER
     Dosage: AT BEDTIME
     Route: 065
  3. COPAXONE [Suspect]
     Active Substance: GLATIRAMER ACETATE
     Indication: RELAPSING-REMITTING MULTIPLE SCLEROSIS
     Dosage: 20 MILLIGRAM DAILY; CONSUMER ROTATES INJECTION SITES
     Route: 058
  4. LEVETIRACETAM. [Concomitant]
     Active Substance: LEVETIRACETAM
     Indication: SEIZURE
     Dosage: 3000 MILLIGRAM DAILY;
     Route: 065
  5. GABAPENTIN. [Concomitant]
     Active Substance: GABAPENTIN
     Indication: NEUROPATHY PERIPHERAL
     Dosage: 3 CAPS 3 TO 4 TIMES DAILY
     Route: 065
  6. ZOLPIDEM [Concomitant]
     Active Substance: ZOLPIDEM\ZOLPIDEM TARTRATE
     Dosage: AT BEDTIME
     Route: 065
  7. HYDROXYZINE [Concomitant]
     Active Substance: HYDROXYZINE HYDROCHLORIDE
     Dosage: 75 MILLIGRAM DAILY; AS NEEDED
     Route: 065
  8. SUVOREXANT. [Concomitant]
     Active Substance: SUVOREXANT
     Route: 065
  9. AMITRIPTYLINE [Concomitant]
     Active Substance: AMITRIPTYLINE
     Indication: INSOMNIA
     Dosage: AT BEDTIME
     Route: 065
  10. VISTARIL [Concomitant]
     Active Substance: HYDROXYZINE PAMOATE
     Route: 065
  11. GLATOPA [Suspect]
     Active Substance: GLATIRAMER ACETATE
     Indication: MULTIPLE SCLEROSIS
     Route: 065
  12. NICOTINE TRANSDERMAL SYSTEM [Concomitant]
     Active Substance: NICOTINE
     Dosage: QUIT SMOKING 3 WEEKS AGO
     Route: 062
  13. NICOTINE. [Concomitant]
     Active Substance: NICOTINE
     Route: 065

REACTIONS (13)
  - Hypoacusis [Unknown]
  - Multiple sclerosis [Unknown]
  - Injection site atrophy [Unknown]
  - Neuropathy peripheral [Unknown]
  - Pressure of speech [Unknown]
  - Anxiety [Unknown]
  - Multiple sclerosis relapse [Unknown]
  - Asthenia [Unknown]
  - Hypersensitivity [Unknown]
  - Fatigue [Unknown]
  - Substance abuse [Unknown]
  - Seizure [Unknown]
  - Tooth disorder [Unknown]
